FAERS Safety Report 4505534-7 (Version None)
Quarter: 2004Q4

REPORT INFORMATION
  Report Type: 
  Country: None (occurrence: None)
  Receive Date: 20041018
  Receipt Date: 20040803
  Transmission Date: 20050328
  Serious: No
  Sender: FDA-Public Use
  Company Number: 208261

PATIENT
  Age: 53 Year
  Sex: Female
  Weight: 83 kg

DRUGS (6)
  1. XOLAIR [Suspect]
     Indication: ASTHMA
     Dosage: 150 MG, 1/MONTH, SUBCUTANEOUS
     Route: 058
     Dates: start: 20040510, end: 20040730
  2. ALBUTEROL (ALBUTEROL SULFATE, ALBUTEROL) [Concomitant]
  3. FORADIL [Concomitant]
  4. PULMICORT [Concomitant]
  5. ALLEGRA [Concomitant]
  6. RHINOCORT AQUA (BUDESONIDE) [Concomitant]

REACTIONS (1)
  - LYMPHADENOPATHY [None]
